FAERS Safety Report 5037529-1 (Version None)
Quarter: 2006Q2

REPORT INFORMATION
  Report Type: 
  Country: None (occurrence: None)
  Receive Date: 20060628
  Receipt Date: 20060621
  Transmission Date: 20061013
  Serious: Yes (Hospitalization)
  Sender: FDA-Public Use
  Company Number: US-BRISTOL-MYERS SQUIBB COMPANY-13419510

PATIENT
  Age: 34 Year
  Sex: Female

DRUGS (3)
  1. SERZONE [Suspect]
     Indication: DEPRESSION
     Route: 048
     Dates: start: 19970701
  2. SYNTHROID [Concomitant]
  3. TYLENOL (CAPLET) [Concomitant]

REACTIONS (1)
  - HEPATIC FAILURE [None]
